FAERS Safety Report 15543419 (Version 1)
Quarter: 2018Q4

REPORT INFORMATION
  Report Type: Spontaneous
  Country: US (occurrence: US)
  Receive Date: 20181023
  Receipt Date: 20181023
  Transmission Date: 20190205
  Serious: Yes (Other)
  Sender: FDA-Public Use
  Company Number: US-NAPPMUNDI-USA-2018-0143467

PATIENT
  Sex: Male

DRUGS (4)
  1. LORTAB [Suspect]
     Active Substance: ACETAMINOPHEN\HYDROCODONE BITARTRATE
     Indication: DRUG ABUSE
     Dosage: UNK
     Route: 065
  2. OPANA [Suspect]
     Active Substance: OXYMORPHONE HYDROCHLORIDE
     Indication: DRUG ABUSE
     Dosage: UNK
     Route: 065
     Dates: start: 2011
  3. OXYCONTIN [Suspect]
     Active Substance: OXYCODONE HYDROCHLORIDE
     Indication: DRUG ABUSE
     Dosage: UNK
     Route: 048
  4. HEROIN [Suspect]
     Active Substance: DIAMORPHINE
     Indication: DRUG ABUSE
     Dosage: UNK
     Route: 042
     Dates: start: 2013

REACTIONS (12)
  - Vertigo [Unknown]
  - Euphoric mood [Recovered/Resolved]
  - Drug withdrawal syndrome [Recovered/Resolved]
  - Pain [Unknown]
  - Drug dependence [Recovering/Resolving]
  - Fatigue [Unknown]
  - Unevaluable event [Unknown]
  - Emotional poverty [Unknown]
  - Drug abuse [Recovering/Resolving]
  - Crying [Unknown]
  - Bradyphrenia [Unknown]
  - Feeling abnormal [Unknown]
